FAERS Safety Report 4426716-9 (Version None)
Quarter: 2004Q3

REPORT INFORMATION
  Report Type: 
  Country: None (occurrence: None)
  Receive Date: 20040812
  Receipt Date: 20040812
  Transmission Date: 20050211
  Serious: No
  Sender: FDA-Public Use
  Company Number: None

PATIENT
  Age: 32 Year
  Sex: Female
  Weight: 70.3075 kg

DRUGS (2)
  1. LEVAQUIN [Suspect]
     Indication: SINUSITIS
     Dosage: 1 PER DAY ORAL
     Route: 048
     Dates: start: 20000901, end: 20000914
  2. LEVAQUIN [Suspect]
     Indication: SINUSITIS
     Dosage: 1 PER DAY ORAL
     Route: 048
     Dates: start: 20040728, end: 20040809

REACTIONS (14)
  - ABASIA [None]
  - ARTHRALGIA [None]
  - ASTHMA [None]
  - CONFUSIONAL STATE [None]
  - DIZZINESS [None]
  - FATIGUE [None]
  - INTERVERTEBRAL DISC DISORDER [None]
  - JOINT RANGE OF MOTION DECREASED [None]
  - MOANING [None]
  - MUSCLE CRAMP [None]
  - MYALGIA [None]
  - PAIN [None]
  - TENDON DISORDER [None]
  - TENDON RUPTURE [None]
